FAERS Safety Report 15706357 (Version 1)
Quarter: 2018Q4

REPORT INFORMATION
  Report Type: Spontaneous
  Country: US (occurrence: US)
  Receive Date: 20181210
  Receipt Date: 20181210
  Transmission Date: 20190205
  Serious: Yes (Other)
  Sender: FDA-Public Use
  Company Number: US-ASTRAZENECA-2018SF59110

PATIENT
  Sex: Female
  Weight: 104.3 kg

DRUGS (2)
  1. PREDNISONE. [Concomitant]
     Active Substance: PREDNISONE
  2. SYMBICORT [Suspect]
     Active Substance: BUDESONIDE\FORMOTEROL FUMARATE DIHYDRATE
     Indication: ASTHMA
     Dosage: 80/4.5 2 PUFFS TWICE A DAY
     Route: 055
     Dates: start: 201808

REACTIONS (4)
  - Product dose omission [Unknown]
  - Intentional product misuse [Unknown]
  - Anaesthetic complication [Unknown]
  - Device issue [Unknown]
